FAERS Safety Report 24541028 (Version 1)
Quarter: 2024Q4

REPORT INFORMATION
  Report Type: Spontaneous
  Country: FR (occurrence: FR)
  Receive Date: 20241023
  Receipt Date: 20241023
  Transmission Date: 20250115
  Serious: Yes (Other)
  Sender: UPSHER SMITH LABORATORIES
  Company Number: FR-UPSHER-SMITH LABORATORIES, LLC-20241000196

PATIENT
  Sex: Male

DRUGS (1)
  1. TOPIRAMATE [Suspect]
     Active Substance: TOPIRAMATE
     Indication: Product used for unknown indication
     Dosage: 700 MG
     Route: 065

REACTIONS (5)
  - Toxic encephalopathy [Unknown]
  - Suicide attempt [Unknown]
  - Electroencephalogram abnormal [Not Recovered/Not Resolved]
  - Blood bicarbonate decreased [Unknown]
  - Intentional overdose [Unknown]
